FAERS Safety Report 5867454-5 (Version None)
Quarter: 2008Q3

REPORT INFORMATION
  Report Type: 
  Country: None (occurrence: None)
  Receive Date: 20080902
  Receipt Date: 20080902
  Transmission Date: 20090109
  Serious: Yes (Hospitalization)
  Sender: FDA-Public Use
  Company Number: PHEH1996US09652

PATIENT
  Sex: Male
  Weight: 85.3 kg

DRUGS (5)
  1. NEORAL [Suspect]
     Route: 048
     Dates: start: 19950707, end: 19950801
  2. IMURAN [Concomitant]
     Dosage: UNSPECIFIED
     Route: 065
  3. MULTI-VITAMIN [Concomitant]
     Dosage: UNSPECIFIED
     Route: 065
  4. ZOVIRAX [Concomitant]
     Dosage: UNSPECIFIED
     Route: 065
  5. BACTRIM [Concomitant]
     Dosage: UNSPECIFIED
     Route: 065

REACTIONS (1)
  - TRANSPLANT REJECTION [None]
